FAERS Safety Report 4560353-0 (Version None)
Quarter: 2005Q1

REPORT INFORMATION
  Report Type: 
  Country: None (occurrence: None)
  Receive Date: 20050125
  Receipt Date: 20050112
  Transmission Date: 20050727
  Serious: Yes (Other)
  Sender: FDA-Public Use
  Company Number: US-AMGEN-US107255

PATIENT
  Age: 79 Year
  Sex: Male

DRUGS (3)
  1. NEUPOGEN [Suspect]
     Indication: MYELODYSPLASTIC SYNDROME
     Dates: start: 20011001
  2. IDARUBICIN HCL [Concomitant]
     Dates: start: 19970701
  3. CYTARABINE [Concomitant]
     Dates: start: 19970701

REACTIONS (4)
  - FUNGAL INFECTION [None]
  - LEUKAEMOID REACTION [None]
  - MONOCYTOSIS [None]
  - RESPIRATORY DISORDER [None]
